FAERS Safety Report 25161652 (Version 1)
Quarter: 2025Q2

REPORT INFORMATION
  Report Type: Spontaneous
  Country: SI (occurrence: SI)
  Receive Date: 20250404
  Receipt Date: 20250404
  Transmission Date: 20250717
  Serious: Yes (Life-Threatening)
  Sender: ABBVIE
  Company Number: None

PATIENT
  Age: 70 Year
  Sex: Female
  Weight: 80 kg

DRUGS (12)
  1. CITALOPRAM [Suspect]
     Active Substance: CITALOPRAM
     Indication: Depression
     Dosage: 2TBL 20MG 1X PER DAY
     Route: 048
  2. SERTRALINE HYDROCHLORIDE [Suspect]
     Active Substance: SERTRALINE HYDROCHLORIDE
     Indication: Depression
     Dosage: 100MG 1X PER DAY
     Route: 048
  3. AMOXICILLIN\CLAVULANATE POTASSIUM [Concomitant]
     Active Substance: AMOXICILLIN\CLAVULANATE POTASSIUM
     Indication: Inflammatory marker increased
  4. MIRTAZAPINE [Suspect]
     Active Substance: MIRTAZAPINE
     Indication: Depression
     Dosage: 30MG 1X PER DAY
     Route: 048
  5. SYNJARDY [Concomitant]
     Active Substance: EMPAGLIFLOZIN\METFORMIN HYDROCHLORIDE
     Indication: Product used for unknown indication
     Dosage: DOSE: 2X12.5/1000MG
  6. LORAZEPAM [Concomitant]
     Active Substance: LORAZEPAM
     Indication: Product used for unknown indication
  7. PANTOPRAZOLE SODIUM [Concomitant]
     Active Substance: PANTOPRAZOLE SODIUM
     Indication: Product used for unknown indication
  8. XALATAN [Concomitant]
     Active Substance: LATANOPROST
     Indication: Product used for unknown indication
  9. FIASP [Concomitant]
     Active Substance: INSULIN ASPART
     Indication: Product used for unknown indication
  10. ARCOXIA [Concomitant]
     Active Substance: ETORICOXIB
     Indication: Product used for unknown indication
  11. LEVEMIR [Concomitant]
     Active Substance: INSULIN DETEMIR
     Indication: Product used for unknown indication
  12. NEURONTIN [Concomitant]
     Active Substance: GABAPENTIN
     Indication: Product used for unknown indication

REACTIONS (1)
  - Serotonin syndrome [Recovering/Resolving]
